FAERS Safety Report 11659685 (Version 4)
Quarter: 2016Q1

REPORT INFORMATION
  Report Type: Report from Study
  Country: NL (occurrence: NL)
  Receive Date: 20151026
  Receipt Date: 20160118
  Transmission Date: 20160525
  Serious: Yes (Hospitalization)
  Sender: FDA-Public Use
  Company Number: NL-ROCHE-1650077

PATIENT
  Age: 71 Year
  Sex: Female

DRUGS (6)
  1. TENIPOSIDE. [Suspect]
     Active Substance: TENIPOSIDE
     Indication: MALIGNANT LYMPHOID NEOPLASM
     Dosage: DATE OF LAST DOSE 28/SEP/2015
     Route: 065
     Dates: start: 20150927, end: 20151106
  2. CARMUSTINE [Suspect]
     Active Substance: CARMUSTINE
     Indication: MALIGNANT LYMPHOID NEOPLASM
     Dosage: DATE OF LAST DOSE 29/SEP/2015
     Route: 065
     Dates: start: 20150929, end: 20151106
  3. DEXAMETHASONE. [Suspect]
     Active Substance: DEXAMETHASONE
     Indication: MALIGNANT LYMPHOID NEOPLASM
     Dosage: DATE OF LAST DOSE 30/SEP/2015
     Route: 065
     Dates: start: 20150926, end: 20151106
  4. SOTALOL. [Concomitant]
     Active Substance: SOTALOL
  5. METHOTREXATE [Suspect]
     Active Substance: METHOTREXATE
     Indication: MALIGNANT LYMPHOID NEOPLASM
     Dosage: DATE OF LAST DOSE 13/OCT/2015
     Route: 065
     Dates: start: 20150926, end: 20151106
  6. RITUXIMAB [Suspect]
     Active Substance: RITUXIMAB
     Indication: MALIGNANT LYMPHOID NEOPLASM
     Dosage: DATE OF LAST DOSE 12/OCT/2015
     Route: 042
     Dates: start: 20150925, end: 20151106

REACTIONS (1)
  - Muscular weakness [Not Recovered/Not Resolved]

NARRATIVE: CASE EVENT DATE: 20151017
